FAERS Safety Report 7693556-7 (Version None)
Quarter: 2011Q3

REPORT INFORMATION
  Report Type: 
  Country: None (occurrence: None)
  Receive Date: 20110819
  Receipt Date: 20110808
  Transmission Date: 20111222
  Serious: Yes (Hospitalization)
  Sender: FDA-Public Use
  Company Number: JP-SANOFI-AVENTIS-2011SA052352

PATIENT
  Age: 38 Year
  Sex: Male

DRUGS (4)
  1. ETHAMBUTOL HYDROCHLORIDE [Suspect]
     Route: 065
  2. RIFAMPICIN [Suspect]
     Route: 065
  3. PYRAZINAMIDE [Suspect]
     Route: 065
  4. ISONIAZID [Suspect]
     Route: 065

REACTIONS (1)
  - HEPATITIS FULMINANT [None]
